FAERS Safety Report 6469156-3 (Version None)
Quarter: 2009Q4

REPORT INFORMATION
  Report Type: 
  Country: None (occurrence: None)
  Receive Date: 20091203
  Receipt Date: 20081111
  Transmission Date: 20100525
  Serious: Yes (Hospitalization, Other)
  Sender: FDA-Public Use
  Company Number: US-ELI_LILLY_AND_COMPANY-US200704004657

PATIENT
  Age: 54 Year
  Sex: Female

DRUGS (3)
  1. FORTEO [Suspect]
     Indication: OSTEOPOROSIS
     Dosage: UNK, UNK
     Dates: start: 20070101, end: 20070401
  2. FORTEO [Suspect]
     Dates: start: 20080101
  3. PERCOCET [Concomitant]
     Indication: PAIN

REACTIONS (6)
  - ARTHROPATHY [None]
  - BLOOD ALKALINE PHOSPHATASE INCREASED [None]
  - BONE SCAN ABNORMAL [None]
  - CHEST X-RAY ABNORMAL [None]
  - ENCHONDROMATOSIS [None]
  - FOREARM FRACTURE [None]
